FAERS Safety Report 8863102 (Version 2)
Quarter: 2012Q4

REPORT INFORMATION
  Report Type: 
  Country: DE (occurrence: DE)
  Receive Date: 20121026
  Receipt Date: 20121206
  Transmission Date: 20130627
  Serious: Yes (Other)
  Sender: FDA-Public Use
  Company Number: DE-PFIZER INC-2011274112

PATIENT
  Age: 50 Year
  Sex: Male

DRUGS (11)
  1. CISPLATIN [Suspect]
     Indication: NON-SMALL CELL LUNG CANCER METASTATIC
     Dosage: 75 mg/m2, day 1, every 3 weeks
     Route: 065
  2. CISPLATIN [Suspect]
     Dosage: 20% dose reduction
     Route: 065
  3. PEMETREXED [Suspect]
     Indication: NON-SMALL CELL LUNG CANCER METASTATIC
     Dosage: 500 mg/m2, day 1, every 3 weeks
     Route: 065
  4. PEMETREXED [Suspect]
     Dosage: 20% dose reduction
     Route: 065
  5. VITAMIN B12 [Concomitant]
     Indication: SUPPLEMENTATION THERAPY
     Dosage: UNK
  6. FOLIC ACID [Concomitant]
     Indication: SUPPLEMENTATION THERAPY
     Dosage: UNK
     Route: 065
  7. GRANISETRON [Concomitant]
     Indication: EMESIS
     Dosage: 3 mg, day 1
     Route: 042
  8. DEXAMETHASONE [Concomitant]
     Indication: BRAIN EDEMA
     Dosage: 4 mg, 2x/day
     Route: 048
  9. DEXAMETHASONE [Concomitant]
     Indication: PROPHYLAXIS
  10. ASPIRIN [Concomitant]
     Dosage: UNK
     Route: 065
  11. CYANOCOBALAMIN [Concomitant]
     Indication: SUPPLEMENTATION THERAPY
     Dosage: UNK
     Route: 065

REACTIONS (1)
  - Toxic epidermal necrolysis [Recovered/Resolved]
